FAERS Safety Report 6160596-9 (Version None)
Quarter: 2009Q2

REPORT INFORMATION
  Report Type: 
  Country: None (occurrence: None)
  Receive Date: 20090416
  Receipt Date: 20090402
  Transmission Date: 20091009
  Serious: Yes (Hospitalization)
  Sender: FDA-Public Use
  Company Number: 1000005592

PATIENT
  Age: 40 Year
  Sex: Male
  Weight: 110 kg

DRUGS (25)
  1. CITALOPRAM HYDROBROMIDE [Suspect]
     Indication: NON-HODGKIN'S LYMPHOMA
     Dosage: ORAL
     Route: 048
     Dates: start: 20010101, end: 20070501
  2. STESOLIDE (TABLETS) [Suspect]
     Indication: NON-HODGKIN'S LYMPHOMA
     Dates: end: 20070501
  3. IMOVANE (TABLETS) [Suspect]
     Indication: NON-HODGKIN'S LYMPHOMA
     Dates: start: 20010501
  4. APROVEL [Concomitant]
  5. ZOLOFT [Concomitant]
  6. CELEBRA [Concomitant]
  7. AMARYL [Concomitant]
  8. SIMVASTATIN [Concomitant]
  9. AMLODIPINE [Concomitant]
  10. LANSOPRAZOLE [Concomitant]
  11. ACETAMINOPHEN [Concomitant]
  12. IBUX [Concomitant]
  13. PINEX FORTE [Concomitant]
  14. CREON [Concomitant]
  15. ARTHROTEC [Concomitant]
  16. ATACAND HCT [Concomitant]
  17. LAMICTAL [Concomitant]
  18. CREON [Concomitant]
  19. MIANSERIN [Concomitant]
  20. LIPITOR [Concomitant]
  21. TEGRETOL [Concomitant]
  22. IMODIUM [Concomitant]
  23. RELIFEX [Concomitant]
  24. VIOXX [Concomitant]
  25. NORVASC [Concomitant]

REACTIONS (16)
  - ALANINE AMINOTRANSFERASE INCREASED [None]
  - BLOOD IMMUNOGLOBULIN A INCREASED [None]
  - DIARRHOEA [None]
  - HYPERHIDROSIS [None]
  - HYPERVENTILATION [None]
  - MENTAL DISORDER [None]
  - MYALGIA [None]
  - NAUSEA [None]
  - NERVOUSNESS [None]
  - NIGHTMARE [None]
  - POOR QUALITY SLEEP [None]
  - SLEEP DISORDER [None]
  - SLEEP TALKING [None]
  - TINNITUS [None]
  - VOMITING [None]
  - WEIGHT INCREASED [None]
